FAERS Safety Report 8365498-5 (Version None)
Quarter: 2012Q2

REPORT INFORMATION
  Report Type: 
  Country: None (occurrence: None)
  Receive Date: 20120516
  Receipt Date: 20120511
  Transmission Date: 20120825
  Serious: Yes (Hospitalization)
  Sender: FDA-Public Use
  Company Number: US-BAYER-2012-047465

PATIENT
  Age: 26 Year
  Sex: Female
  Weight: 96.2 kg

DRUGS (19)
  1. MIDAZOLAM [Concomitant]
     Dosage: 2 MG, UNK
     Route: 042
     Dates: start: 20050120
  2. PROPOFOL [Concomitant]
     Dosage: 150 MG, UNK
     Dates: start: 20050120
  3. YASMIN [Suspect]
     Dosage: UNK
  4. MORPHINE [Concomitant]
     Dosage: 4 MG, UNK
     Dates: start: 20050120
  5. CYLERT [Concomitant]
     Indication: ATTENTION DEFICIT/HYPERACTIVITY DISORDER
     Dosage: UNK
  6. FENTANYL-100 [Concomitant]
     Dosage: 250 MCG
     Dates: start: 20050120
  7. DEMEROL [Concomitant]
     Dosage: 40 MG, UNK
     Dates: start: 20050120
  8. CEFAZOLIN [Concomitant]
     Dosage: 1 G, TID
     Route: 042
     Dates: start: 20050120
  9. GRANISETRON [Concomitant]
     Dosage: 0.1 MG, UNK
     Route: 042
     Dates: start: 20050120
  10. MARCAINE HYDROCHLORIDE W/ EPINEPHRINE [Concomitant]
     Dosage: 0.25 %, UNK
     Dates: start: 20050120
  11. LIDOCAINE [Concomitant]
     Dosage: 75 MG, UNK
     Dates: start: 20050120
  12. HYDROMORPHONE HCL [Concomitant]
     Dosage: 2 MG, UNK
     Route: 042
     Dates: start: 20050120
  13. LEXAPRO [Concomitant]
     Indication: PREMENSTRUAL SYNDROME
     Dosage: 20 MG, UNK
     Route: 048
     Dates: start: 20041223
  14. METOCLOPRAMIDE [Concomitant]
     Dosage: 10 MG, UNK
     Route: 042
     Dates: start: 20050120
  15. VICODIN [Concomitant]
     Dosage: 1 TAB, PRN
     Dates: start: 20050120
  16. KETOROLAC TROMETHAMINE [Concomitant]
     Dosage: 30 MG, UNK
     Dates: start: 20050120
  17. MARCAINE [Concomitant]
     Dosage: 0.5 %, UNK
     Dates: start: 20050120
  18. ROCURONIUM BROMIDE [Concomitant]
     Dosage: UNK
     Dates: start: 20050120
  19. FAMOTIDINE [Concomitant]
     Dosage: 20 MG, UNK
     Route: 042
     Dates: start: 20050120

REACTIONS (1)
  - DEEP VEIN THROMBOSIS [None]
